FAERS Safety Report 25754891 (Version 1)
Quarter: 2025Q3

REPORT INFORMATION
  Report Type: Spontaneous
  Country: EU (occurrence: EU)
  Receive Date: 20250903
  Receipt Date: 20250903
  Transmission Date: 20251020
  Serious: Yes (Other)
  Sender: RANBAXY
  Company Number: EU-SUN PHARMACEUTICAL INDUSTRIES LTD-2025RR-524416

PATIENT
  Age: 6 Decade
  Sex: Female

DRUGS (2)
  1. SITAGLIPTIN [Suspect]
     Active Substance: SITAGLIPTIN
     Indication: Product used for unknown indication
     Route: 065
  2. MESALAMINE [Suspect]
     Active Substance: MESALAMINE
     Indication: Large intestinal stenosis
     Route: 065

REACTIONS (6)
  - Inflammatory bowel disease [Unknown]
  - Drug ineffective [Unknown]
  - Eosinophilia [Recovered/Resolved]
  - Colitis [Unknown]
  - Dehydration [Unknown]
  - Diarrhoea [Recovered/Resolved]
